FAERS Safety Report 20851032 (Version 11)
Quarter: 2023Q4

REPORT INFORMATION
  Report Type: Spontaneous
  Country: US (occurrence: US)
  Receive Date: 20220519
  Receipt Date: 20231120
  Transmission Date: 20240110
  Serious: No
  Sender: FDA-Public Use
  Company Number: US-PFIZER INC-202200677419

PATIENT
  Age: 63 Year
  Sex: Female
  Weight: 71.655 kg

DRUGS (3)
  1. LORBRENA [Suspect]
     Active Substance: LORLATINIB
     Indication: Lung neoplasm malignant
     Dosage: 1 DF, 1X/DAY
     Dates: start: 20220501
  2. LORBRENA [Suspect]
     Active Substance: LORLATINIB
     Indication: Non-small cell lung cancer
     Dosage: 100 MG, 1X/DAY
  3. LORBRENA [Suspect]
     Active Substance: LORLATINIB
     Indication: Non-small cell lung cancer metastatic
     Dosage: 75MG [25 MG TABLET 3 TABLET ORALLY DAILY]
     Route: 048
     Dates: start: 202205

REACTIONS (12)
  - Neoplasm progression [Not Recovered/Not Resolved]
  - Fatigue [Not Recovered/Not Resolved]
  - Somnolence [Not Recovered/Not Resolved]
  - Nasopharyngitis [Recovered/Resolved]
  - Thinking abnormal [Not Recovered/Not Resolved]
  - Hypoaesthesia [Unknown]
  - Muscular weakness [Unknown]
  - Pain in extremity [Unknown]
  - Glycosylated haemoglobin abnormal [Unknown]
  - Blood triglycerides abnormal [Unknown]
  - Blood cholesterol abnormal [Unknown]
  - Dyspnoea exertional [Unknown]

NARRATIVE: CASE EVENT DATE: 20220501
